FAERS Safety Report 19695233 (Version 1)
Quarter: 2021Q3

REPORT INFORMATION
  Report Type: Report from Study
  Country: FR (occurrence: FR)
  Receive Date: 20210812
  Receipt Date: 20210812
  Transmission Date: 20211014
  Serious: Yes (Hospitalization, Other)
  Sender: FDA-Public Use
  Company Number: FR-TAKEDA-2021TUS049021

PATIENT
  Age: 35 Year
  Sex: Female

DRUGS (8)
  1. METHOTREXAT [Concomitant]
     Active Substance: METHOTREXATE
     Indication: RHEUMATIC DISORDER
     Dosage: 15 MILLIGRAM, 1/WEEK
     Route: 058
     Dates: start: 202005
  2. TEDUGLUTIDE [Suspect]
     Active Substance: TEDUGLUTIDE
     Indication: SHORT-BOWEL SYNDROME
     Dosage: 4.2 MILLIGRAM, QD
     Route: 065
     Dates: start: 20171204
  3. PREDNISONE. [Concomitant]
     Active Substance: PREDNISONE
     Dosage: 20 MILLIGRAM, DAILY
     Route: 048
     Dates: start: 20191007, end: 202005
  4. TEDUGLUTIDE [Suspect]
     Active Substance: TEDUGLUTIDE
     Indication: SHORT-BOWEL SYNDROME
     Dosage: 4.2 MILLIGRAM, QD
     Route: 065
     Dates: start: 20171204
  5. TEDUGLUTIDE [Suspect]
     Active Substance: TEDUGLUTIDE
     Indication: SHORT-BOWEL SYNDROME
     Dosage: 4.2 MILLIGRAM, QD
     Route: 065
     Dates: start: 20171204
  6. TEDUGLUTIDE [Suspect]
     Active Substance: TEDUGLUTIDE
     Indication: SHORT-BOWEL SYNDROME
     Dosage: 4.2 MILLIGRAM, QD
     Route: 065
     Dates: start: 20171204
  7. ADALIMUMAB [Concomitant]
     Active Substance: ADALIMUMAB
     Indication: RHEUMATIC DISORDER
     Dosage: UNK
     Route: 058
     Dates: start: 202005
  8. PREDNISONE. [Concomitant]
     Active Substance: PREDNISONE
     Indication: RHEUMATIC DISORDER
     Dosage: 10 MILLIGRAM, QD
     Route: 048
     Dates: start: 202005, end: 202009

REACTIONS (1)
  - Vena cava thrombosis [Recovered/Resolved]

NARRATIVE: CASE EVENT DATE: 20210321
